FAERS Safety Report 7422815-8 (Version None)
Quarter: 2011Q2

REPORT INFORMATION
  Report Type: 
  Country: None (occurrence: None)
  Receive Date: 20110419
  Receipt Date: 20091231
  Transmission Date: 20111010
  Serious: Yes (Death, Other)
  Sender: FDA-Public Use
  Company Number: US-BAYER-201012138NA

PATIENT
  Age: 83 Year
  Sex: Female
  Weight: 65.76 kg

DRUGS (14)
  1. CLONIDINE [Concomitant]
     Dosage: 1 MG, BID
     Route: 048
  2. NEO-SYNEPHRINOL [Concomitant]
     Dosage: 100 MCG
     Route: 042
     Dates: start: 20010416
  3. ATENOLOL [Concomitant]
     Dosage: 25 MG, QD
     Route: 048
  4. PROTAMINE SULFATE [Concomitant]
     Dosage: UNK
     Route: 042
     Dates: start: 20010416, end: 20010416
  5. HEPARIN [Concomitant]
     Dosage: 19000 U, UNK
     Dates: start: 20010416
  6. ZAROXOLYN [Concomitant]
     Dosage: 5 MG, QD
     Route: 048
  7. TRASYLOL [Suspect]
     Dosage: 1,000,000 KIU PUMP PRIME
     Dates: start: 20010416, end: 20010416
  8. ROCEPHIN [Concomitant]
     Dosage: 2 G, UNK
     Route: 042
     Dates: start: 20010416
  9. ZESTRIL [Concomitant]
     Dosage: 40 MG, QD
     Route: 048
  10. LIPITOR [Concomitant]
     Dosage: 10 MG, QD
     Route: 048
  11. TRASYLOL [Suspect]
     Indication: CORONARY ARTERY BYPASS
     Dosage: 1 ML, TEST DOSE
     Route: 042
     Dates: start: 20010416, end: 20010416
  12. NORVASC [Concomitant]
     Dosage: 10 MG, QD
     Route: 048
  13. FOSAMAX [Concomitant]
     Dosage: 10 MG, QD
     Route: 048
  14. IMDUR [Concomitant]
     Dosage: 60 MG, QD
     Route: 048

REACTIONS (16)
  - DEATH [None]
  - CEREBROVASCULAR ACCIDENT [None]
  - EMOTIONAL DISTRESS [None]
  - MYOCARDIAL INFARCTION [None]
  - STRESS [None]
  - ANXIETY [None]
  - INJURY [None]
  - UNEVALUABLE EVENT [None]
  - VENTRICULAR FIBRILLATION [None]
  - RENAL IMPAIRMENT [None]
  - RENAL INJURY [None]
  - MULTI-ORGAN FAILURE [None]
  - CARDIAC DISORDER [None]
  - RENAL FAILURE [None]
  - FEAR [None]
  - PAIN [None]
